FAERS Safety Report 7178744-0 (Version None)
Quarter: 2010Q4

REPORT INFORMATION
  Report Type: 
  Country: None (occurrence: None)
  Receive Date: 20101221
  Receipt Date: 20101213
  Transmission Date: 20110411
  Serious: Yes (Death, Other)
  Sender: FDA-Public Use
  Company Number: IT-CELGENEUS-083-21880-10101952

PATIENT

DRUGS (4)
  1. REVLIMID [Suspect]
     Indication: AMYLOIDOSIS
     Route: 048
     Dates: start: 20070701, end: 20090701
  2. DEXAMETHASONE [Concomitant]
     Indication: AMYLOIDOSIS
     Route: 065
     Dates: start: 20070701, end: 20090701
  3. ASPIRIN [Concomitant]
     Indication: PROPHYLAXIS
     Route: 065
  4. OMEPRAZOLE [Concomitant]
     Indication: PROPHYLAXIS
     Route: 065

REACTIONS (7)
  - DEATH [None]
  - DISEASE PROGRESSION [None]
  - NEUTROPENIA [None]
  - NO THERAPEUTIC RESPONSE [None]
  - RASH [None]
  - RENAL FAILURE [None]
  - THROMBOCYTOPENIA [None]
